FAERS Safety Report 7532186-4 (Version None)
Quarter: 2011Q2

REPORT INFORMATION
  Report Type: 
  Country: None (occurrence: None)
  Receive Date: 20110601
  Receipt Date: 20110526
  Transmission Date: 20111010
  Serious: Yes (Death)
  Sender: FDA-Public Use
  Company Number: 2011S1000173

PATIENT
  Sex: Male

DRUGS (1)
  1. INOMAX [Suspect]
     Indication: PRODUCT USED FOR UNKNOWN INDICATION
     Dosage: 20PPM;CONT;INH
     Route: 055
     Dates: start: 20110521, end: 20110524

REACTIONS (1)
  - DEATH [None]
